FAERS Safety Report 7639050 (Version 3)
Quarter: 2015Q1

REPORT INFORMATION
  Report Type: Spontaneous
  Country: BG (occurrence: BG)
  Receive Date: 20101025
  Receipt Date: 20150113
  Transmission Date: 20150721
  Serious: Yes (Life-Threatening, Hospitalization, Other)
  Sender: FDA-Public Use
  Company Number: PHHY2010BG70159

PATIENT
  Sex: Male

DRUGS (4)
  1. LESCOL XL [Suspect]
     Active Substance: FLUVASTATIN SODIUM
     Indication: BLOOD CHOLESTEROL INCREASED
     Dosage: 80 MG, QD
     Route: 048
     Dates: end: 201007
  2. ZOPICLONE [Concomitant]
     Active Substance: ZOPICLONE
     Indication: PRODUCT USED FOR UNKNOWN INDICATION
     Dosage: UNK
     Route: 065
  3. INVEGA [Concomitant]
     Active Substance: PALIPERIDONE
     Indication: SCHIZOPHRENIA, PARANOID TYPE
     Dosage: UNK
     Route: 065
  4. XYZAL [Concomitant]
     Active Substance: LEVOCETIRIZINE DIHYDROCHLORIDE
     Indication: PRODUCT USED FOR UNKNOWN INDICATION
     Dosage: UNK
     Route: 065

REACTIONS (25)
  - Muscle injury [Unknown]
  - Alanine aminotransferase increased [Recovering/Resolving]
  - Haematemesis [Recovered/Resolved]
  - Paraesthesia [Recovering/Resolving]
  - Dry mouth [Recovered/Resolved]
  - Faeces discoloured [Recovered/Resolved]
  - Hypersensitivity [Recovering/Resolving]
  - Myoglobin blood increased [Recovering/Resolving]
  - Urinary incontinence [Unknown]
  - Anxiety [Recovering/Resolving]
  - Hypertension [Recovering/Resolving]
  - Rhabdomyolysis [Not Recovered/Not Resolved]
  - Blood creatine phosphokinase increased [Recovering/Resolving]
  - Chromaturia [Recovered/Resolved]
  - Hypoaesthesia [Recovered/Resolved]
  - Dyslipidaemia [Recovering/Resolving]
  - Coma [Recovering/Resolving]
  - Muscular weakness [Recovering/Resolving]
  - Dementia [Recovering/Resolving]
  - Decubitus ulcer [Recovered/Resolved]
  - Aspartate aminotransferase increased [Recovering/Resolving]
  - Thirst [Recovered/Resolved]
  - Gamma-glutamyltransferase increased [Recovering/Resolving]
  - Brain oedema [Recovering/Resolving]
  - Oesophageal disorder [Recovered/Resolved]

NARRATIVE: CASE EVENT DATE: 201007
